FAERS Safety Report 6503911-6 (Version None)
Quarter: 2009Q4

REPORT INFORMATION
  Report Type: 
  Country: None (occurrence: None)
  Receive Date: 20091217
  Receipt Date: 20091207
  Transmission Date: 20100525
  Serious: Yes (Life-Threatening, Hospitalization)
  Sender: FDA-Public Use
  Company Number: JP-PFIZER INC-2009308301

PATIENT
  Age: 83 Year
  Sex: Male
  Weight: 42.9 kg

DRUGS (4)
  1. SUNITINIB MALATE [Suspect]
     Indication: GASTROINTESTINAL STROMAL TUMOUR
     Dosage: 37.5 MG, 1X/DAY
     Route: 048
     Dates: start: 20080619, end: 20091128
  2. NU LOTAN [Concomitant]
     Dosage: UNK
     Route: 048
     Dates: start: 20090106
  3. PELTAZON [Concomitant]
     Dosage: UNK
     Route: 048
     Dates: start: 20090203
  4. SEPAMIT [Concomitant]
     Route: 048

REACTIONS (1)
  - HEPATIC ENCEPHALOPATHY [None]
